FAERS Safety Report 19021519 (Version 2)
Quarter: 2021Q1

REPORT INFORMATION
  Report Type: Report from Study
  Country: GR (occurrence: GR)
  Receive Date: 20210317
  Receipt Date: 20210319
  Transmission Date: 20210420
  Serious: Yes (Death, Other)
  Sender: FDA-Public Use
  Company Number: GR-SHIRE-GR201917811

PATIENT
  Age: 78 Year
  Sex: Female

DRUGS (2)
  1. THYRO [Concomitant]
     Indication: THYROID DISORDER
     Route: 065
  2. HUMAN IMMUNOGLOBULIN; HYALURONIDASE [Suspect]
     Active Substance: HUMAN IMMUNOGLOBULIN G\HYALURONIDASE RECOMBINANT HUMAN
     Indication: IMMUNODEFICIENCY COMMON VARIABLE
     Dosage: UNK
     Route: 065
     Dates: start: 20190308

REACTIONS (9)
  - Death [Fatal]
  - Fatigue [Unknown]
  - Burning sensation [Unknown]
  - Fall [Unknown]
  - Swelling [Unknown]
  - Epilepsy [Unknown]
  - Infusion site pain [Unknown]
  - Erythema [Unknown]
  - Pyrexia [Unknown]

NARRATIVE: CASE EVENT DATE: 20190416
